FAERS Safety Report 5875344-7 (Version None)
Quarter: 2008Q3

REPORT INFORMATION
  Report Type: 
  Country: None (occurrence: None)
  Receive Date: 20080904
  Receipt Date: 20080821
  Transmission Date: 20090109
  Serious: Yes (Hospitalization)
  Sender: FDA-Public Use
  Company Number: OPIR20080025

PATIENT
  Age: 50 Year
  Sex: Female
  Weight: 68.0396 kg

DRUGS (9)
  1. OPANA [Suspect]
     Indication: FIBROMYALGIA
     Dosage: 10 MG, PRN, UP TO 3 TABLETS PER DAY, PER ORAL
     Route: 048
     Dates: start: 20080708
  2. OPANA ER [Suspect]
     Indication: FIBROMYALGIA
     Dosage: 2 TABLETS BID, PER ORAL
     Route: 048
     Dates: start: 20080708
  3. LEXAPRO [Concomitant]
  4. ABILIFY [Concomitant]
  5. LAMICTAL [Concomitant]
  6. COUMADIN [Concomitant]
  7. ALDACTAZIDE 25/25 [Concomitant]
  8. DEPO-PROVERA [Concomitant]
  9. BONTRIL [Concomitant]

REACTIONS (3)
  - CONDITION AGGRAVATED [None]
  - MANIA [None]
  - OVERDOSE [None]
